FAERS Safety Report 8502697-3 (Version None)
Quarter: 2012Q3

REPORT INFORMATION
  Report Type: 
  Country: None (occurrence: None)
  Receive Date: 20120706
  Receipt Date: 20120706
  Transmission Date: 20120928
  Serious: No
  Sender: FDA-Public Use
  Company Number: None

PATIENT
  Age: 2 Year

DRUGS (5)
  1. DEXTROSE DEXTROSE 5% IN WATER AND 1/2NS 1,000 ML [Suspect]
  2. SYRINGE SYRINGES [Suspect]
     Dosage: 60 ML
  3. STERILE EMPTY 2,000 ML [Suspect]
     Dosage: IV BAG
     Route: 042
  4. DEXTROSE 10% [Suspect]
  5. SODIUM CHLORIDE 23.4% [Suspect]
     Dosage: BOTTLE 250 ML

REACTIONS (8)
  - HYPERNATRAEMIA [None]
  - MALAISE [None]
  - LETHARGY [None]
  - DRUG DISPENSING ERROR [None]
  - NAUSEA [None]
  - DIARRHOEA [None]
  - PRODUCT FORMULATION ISSUE [None]
  - VOMITING [None]
